FAERS Safety Report 9450865 (Version 1)
Quarter: 2013Q3

REPORT INFORMATION
  Report Type: Spontaneous
  Country: US (occurrence: US)
  Receive Date: 20130809
  Receipt Date: 20130809
  Transmission Date: 20140515
  Serious: Yes (Death, Other)
  Sender: FDA-Public Use
  Company Number: US-MERCK-1308USA004172

PATIENT
  Sex: Male

DRUGS (1)
  1. JANUVIA [Suspect]

REACTIONS (2)
  - Death [Fatal]
  - Pancreatic carcinoma [Unknown]
